FAERS Safety Report 11919060 (Version 1)
Quarter: 2016Q1

REPORT INFORMATION
  Report Type: Report from Study
  Country: US (occurrence: US)
  Receive Date: 20160115
  Receipt Date: 20160115
  Transmission Date: 20160526
  Serious: Yes (Hospitalization, Other)
  Sender: FDA-Public Use
  Company Number: US-ROCHE-1692433

PATIENT

DRUGS (1)
  1. BEVACIZUMAB [Suspect]
     Active Substance: BEVACIZUMAB
     Indication: CLEAR CELL RENAL CELL CARCINOMA
     Dosage: OVER 20 MINUTES
     Route: 042

REACTIONS (13)
  - Pyrexia [Unknown]
  - Post procedural oedema [Unknown]
  - Pain [Unknown]
  - Dyspnoea [Unknown]
  - Deep vein thrombosis [Unknown]
  - Infection [Unknown]
  - Nausea [Unknown]
  - Haemorrhage [Unknown]
  - Failure to thrive [Unknown]
  - Blood bilirubin increased [Unknown]
  - Vomiting [Unknown]
  - Chest pain [Unknown]
  - Myocardial infarction [Unknown]
